FAERS Safety Report 18962762 (Version 1)
Quarter: 2021Q1

REPORT INFORMATION
  Report Type: Spontaneous
  Country: US (occurrence: US)
  Receive Date: 20210302
  Receipt Date: 20210302
  Transmission Date: 20210420
  Serious: Yes (Life-Threatening, Hospitalization)
  Sender: FDA-Public Use
  Company Number: None

PATIENT
  Age: 42 Year
  Sex: Male

DRUGS (1)
  1. ZOLPIDEM (ZOLPIDEM TARTRATE 10MG TAB) [Suspect]
     Active Substance: ZOLPIDEM TARTRATE
     Indication: INSOMNIA
     Dosage: ?          OTHER FREQUENCY:HS;?
     Route: 048
     Dates: start: 20200918, end: 20201016

REACTIONS (6)
  - Confusional state [None]
  - Extra dose administered [None]
  - Sedation [None]
  - Delirium [None]
  - Mental disorder [None]
  - Somnambulism [None]

NARRATIVE: CASE EVENT DATE: 20201015
